FAERS Safety Report 25598334 (Version 1)
Quarter: 2025Q3

REPORT INFORMATION
  Report Type: Spontaneous
  Country: US (occurrence: US)
  Receive Date: 20250723
  Receipt Date: 20250723
  Transmission Date: 20251021
  Serious: No
  Sender: ECOLAB
  Company Number: US-ECOLAB-2025-US-018707

PATIENT

DRUGS (1)
  1. SCRUB-STAT [Suspect]
     Active Substance: CHLORHEXIDINE GLUCONATE
     Indication: Product used for unknown indication
     Route: 061

REACTIONS (2)
  - Skin lesion [Recovered/Resolved]
  - Application site erythema [Recovered/Resolved]
